FAERS Safety Report 20120460 (Version 2)
Quarter: 2021Q4

REPORT INFORMATION
  Report Type: Spontaneous
  Country: US (occurrence: US)
  Receive Date: 20211126
  Receipt Date: 20211129
  Transmission Date: 20220303
  Serious: Yes (Hospitalization, Other)
  Sender: FDA-Public Use
  Company Number: US-ELI_LILLY_AND_COMPANY-US202111006847

PATIENT
  Sex: Female

DRUGS (3)
  1. TRULICITY [Suspect]
     Active Substance: DULAGLUTIDE
     Indication: Product used for unknown indication
     Dosage: 0.75 MG, UNKNOWN
     Route: 065
  2. TRULICITY [Suspect]
     Active Substance: DULAGLUTIDE
     Dosage: 0.75 MG, UNKNOWN
     Route: 065
  3. TRULICITY [Suspect]
     Active Substance: DULAGLUTIDE
     Dosage: 1.5 MG, UNKNOWN
     Route: 065
     Dates: start: 2020

REACTIONS (17)
  - Loss of consciousness [Recovered/Resolved]
  - Blood glucose decreased [Recovering/Resolving]
  - Sleep disorder due to a general medical condition [Unknown]
  - Incoherent [Not Recovered/Not Resolved]
  - Brain injury [Unknown]
  - Amnesia [Not Recovered/Not Resolved]
  - Abnormal behaviour [Unknown]
  - Depressed mood [Unknown]
  - Altered state of consciousness [Unknown]
  - Fear [Unknown]
  - Crying [Unknown]
  - Hunger [Unknown]
  - Migraine [Unknown]
  - Illness [Unknown]
  - Diarrhoea [Not Recovered/Not Resolved]
  - Vomiting [Not Recovered/Not Resolved]
  - Fatigue [Unknown]

NARRATIVE: CASE EVENT DATE: 20200101
